FAERS Safety Report 6519591-X (Version None)
Quarter: 2009Q4

REPORT INFORMATION
  Report Type: 
  Country: None (occurrence: None)
  Receive Date: 20091228
  Receipt Date: 20091214
  Transmission Date: 20100525
  Serious: Yes (Death)
  Sender: FDA-Public Use
  Company Number: DE-MYLANLABS-2009S1021305

PATIENT
  Age: 41 Year
  Sex: Male
  Weight: 114 kg

DRUGS (3)
  1. FENTANYL CITRATE [Suspect]
     Dosage: ONE 50 MCG/H PATCH, CONTAINING 11.56G OF FENTANYL
  2. INDOMETHACIN [Concomitant]
  3. CLOMETHIAZOLE [Concomitant]

REACTIONS (8)
  - CARDIOMEGALY [None]
  - DEATH [None]
  - DRUG TOXICITY [None]
  - HEPATIC STEATOSIS [None]
  - INCORRECT ROUTE OF DRUG ADMINISTRATION [None]
  - PULMONARY HAEMORRHAGE [None]
  - PULMONARY OEDEMA [None]
  - URINE CANNABINOIDS INCREASED [None]
